FAERS Safety Report 16621065 (Version 1)
Quarter: 2019Q3

REPORT INFORMATION
  Report Type: Spontaneous
  Country: US (occurrence: US)
  Receive Date: 20190723
  Receipt Date: 20190723
  Transmission Date: 20191004
  Serious: No
  Sender: FDA-Public Use
  Company Number: US-OTSUKA-2018_031094

PATIENT
  Age: 40 Year
  Sex: Male

DRUGS (1)
  1. REXULTI [Suspect]
     Active Substance: BREXPIPRAZOLE
     Indication: DEPRESSION
     Dosage: POSSIBLY 1 MG, QD
     Route: 065
     Dates: start: 201809

REACTIONS (4)
  - Feeling jittery [Not Recovered/Not Resolved]
  - Product use in unapproved indication [Unknown]
  - Libido increased [Not Recovered/Not Resolved]
  - Dizziness [Not Recovered/Not Resolved]

NARRATIVE: CASE EVENT DATE: 201809
